FAERS Safety Report 18013917 (Version 1)
Quarter: 2020Q3

REPORT INFORMATION
  Report Type: Spontaneous
  Country: GB (occurrence: GB)
  Receive Date: 20200713
  Receipt Date: 20200713
  Transmission Date: 20201103
  Serious: Yes (Other)
  Sender: FDA-Public Use
  Company Number: GB-009507513-2007GBR003569

PATIENT
  Age: 28 Year
  Sex: Female

DRUGS (1)
  1. NEXPLANON [Suspect]
     Active Substance: ETONOGESTREL
     Indication: CONTRACEPTION
     Route: 059
     Dates: start: 201810

REACTIONS (4)
  - Maternal exposure during pregnancy [Unknown]
  - Amenorrhoea [Unknown]
  - Pregnancy with contraceptive device [Unknown]
  - Drug level decreased [Unknown]
